FAERS Safety Report 25537286 (Version 2)
Quarter: 2025Q3

REPORT INFORMATION
  Report Type: Spontaneous
  Country: US (occurrence: US)
  Receive Date: 20250710
  Receipt Date: 20250810
  Transmission Date: 20251020
  Serious: No
  Sender: ALEXION PHARMACEUTICALS
  Company Number: US-ASTRAZENECA-202507GLO006810US

PATIENT

DRUGS (1)
  1. TRUQAP [Suspect]
     Active Substance: CAPIVASERTIB
     Route: 065

REACTIONS (1)
  - Pyrexia [Unknown]
